FAERS Safety Report 6016040-5 (Version None)
Quarter: 2008Q4

REPORT INFORMATION
  Report Type: 
  Country: None (occurrence: None)
  Receive Date: 20081222
  Receipt Date: 20081208
  Transmission Date: 20090506
  Serious: Yes (Other)
  Sender: FDA-Public Use
  Company Number: IN-PFIZER INC-2008152631

PATIENT

DRUGS (5)
  1. SOLU-MEDROL [Suspect]
     Dosage: 1 G, 1X/DAY
     Route: 042
     Dates: start: 20081205, end: 20081206
  2. CEFTAZIDIME [Concomitant]
     Dosage: UNK
     Route: 042
     Dates: start: 20081206
  3. AMIKACIN [Concomitant]
     Dosage: UNK
     Route: 042
     Dates: start: 20081206
  4. DICLOFENAC [Concomitant]
     Dosage: UNK
     Route: 042
     Dates: start: 20081206
  5. PANTOPRAZOLE [Concomitant]
     Dosage: UNK
     Route: 042
     Dates: start: 20081206

REACTIONS (2)
  - BURNING SENSATION [None]
  - CHOKING SENSATION [None]
